FAERS Safety Report 8491143-4 (Version None)
Quarter: 2012Q2

REPORT INFORMATION
  Report Type: 
  Country: None (occurrence: None)
  Receive Date: 20120627
  Receipt Date: 20120618
  Transmission Date: 20120825
  Serious: Yes (Other)
  Sender: FDA-Public Use
  Company Number: JPI-P-021182

PATIENT
  Age: 30 Year
  Sex: Female
  Weight: 87.5442 kg

DRUGS (6)
  1. PRAMIPEXOLE DIHYCHLORIDE [Concomitant]
  2. ASPIRIN [Concomitant]
  3. NIFEDIPINE [Concomitant]
  4. XYREM [Suspect]
     Indication: CATAPLEXY
     Dosage: 3 GM (1.5 GM,2 IN 1 D),ORAL ; 7.5 GM (3.75 GM,2 IN 1 D),ORAL
     Route: 048
     Dates: start: 20120417
  5. METHYLPHENIDATE [Concomitant]
  6. TIZANIDINE HYDROCHLORIDE [Concomitant]

REACTIONS (7)
  - ABDOMINAL DISTENSION [None]
  - PYREXIA [None]
  - SOMNAMBULISM [None]
  - SOMNOLENCE [None]
  - CHOLELITHOTOMY [None]
  - DECREASED APPETITE [None]
  - VOMITING [None]
